FAERS Safety Report 16058731 (Version 3)
Quarter: 2019Q2

REPORT INFORMATION
  Report Type: Spontaneous
  Country: US (occurrence: US)
  Receive Date: 20190311
  Receipt Date: 20190522
  Transmission Date: 20190711
  Serious: Yes (Hospitalization)
  Sender: FDA-Public Use
  Company Number: US-B.I. PHARMACEUTICALS,INC./RIDGEFIELD-2019-BI-009672

PATIENT
  Age: 57 Year
  Sex: Female
  Weight: 102 kg

DRUGS (3)
  1. METFORMIN [Concomitant]
     Active Substance: METFORMIN HYDROCHLORIDE
     Indication: TYPE 2 DIABETES MELLITUS
     Route: 065
  2. JARDIANCE [Suspect]
     Active Substance: EMPAGLIFLOZIN
     Indication: TYPE 2 DIABETES MELLITUS
     Dosage: 1 CAPSULE ONCE A DAY
     Route: 048
     Dates: start: 20190219, end: 20190225
  3. HUMALOG [Concomitant]
     Active Substance: INSULIN LISPRO
     Indication: TYPE 2 DIABETES MELLITUS
     Route: 065

REACTIONS (6)
  - Blood ketone body increased [Recovered/Resolved]
  - Myalgia [Not Recovered/Not Resolved]
  - Nausea [Recovered/Resolved]
  - Headache [Recovered/Resolved]
  - Dehydration [Recovered/Resolved]
  - Asthenia [Not Recovered/Not Resolved]

NARRATIVE: CASE EVENT DATE: 20190219
